FAERS Safety Report 17013458 (Version 1)
Quarter: 2019Q4

REPORT INFORMATION
  Report Type: Spontaneous
  Country: US (occurrence: US)
  Receive Date: 20191110
  Receipt Date: 20191110
  Transmission Date: 20200122
  Serious: No
  Sender: FDA-Public Use
  Company Number: US-009507513-1910USA013143

PATIENT
  Age: 35 Year
  Sex: Female
  Weight: 63.49 kg

DRUGS (1)
  1. NEXPLANON [Suspect]
     Active Substance: ETONOGESTREL
     Indication: CONTRACEPTION
     Dosage: ONE TIME EVERY 3 YEARS IN UPPER ARM
     Route: 059
     Dates: start: 201909

REACTIONS (6)
  - Implant site infection [Recovering/Resolving]
  - Implant site swelling [Recovering/Resolving]
  - Implant site pain [Recovering/Resolving]
  - Implant site erythema [Recovering/Resolving]
  - Complication of device removal [Not Recovered/Not Resolved]
  - Implant site fibrosis [Recovering/Resolving]

NARRATIVE: CASE EVENT DATE: 20191011
